FAERS Safety Report 4847235-1 (Version None)
Quarter: 2005Q4

REPORT INFORMATION
  Report Type: 
  Country: None (occurrence: None)
  Receive Date: 20051207
  Receipt Date: 20050812
  Transmission Date: 20060501
  Serious: Yes (Hospitalization)
  Sender: FDA-Public Use
  Company Number: FR-LMS-050096

PATIENT
  Age: 78 Year
  Sex: Male

DRUGS (10)
  1. NABUCOX [Suspect]
     Dosage: 1G TWICE PER DAY
     Route: 048
     Dates: start: 20050718, end: 20050719
  2. LYSOPAINE [Suspect]
     Dosage: 1200IU PER DAY
     Route: 048
     Dates: start: 20050718, end: 20050719
  3. PARACETAMOL + DEXTROPROPOXYPHENE [Concomitant]
     Dosage: 430MG SIX TIMES PER DAY
     Route: 048
  4. AMLODIPINE BESYLATE [Concomitant]
     Route: 048
  5. MOLSIDOMINE [Concomitant]
     Route: 048
  6. PRAVASTATIN SODIUM [Concomitant]
     Route: 048
  7. PANTOPRAZOLE [Concomitant]
     Route: 048
  8. LYSINE ASPIRIN [Concomitant]
     Route: 048
  9. OXAZEPAM [Concomitant]
     Route: 048
  10. PYGEUM AFRICANUM [Concomitant]
     Route: 048

REACTIONS (4)
  - ANAPHYLACTOID REACTION [None]
  - BRONCHOSPASM [None]
  - ERYTHEMA [None]
  - EYE DISORDER [None]
